FAERS Safety Report 25488662 (Version 1)
Quarter: 2025Q2

REPORT INFORMATION
  Report Type: Spontaneous
  Country: FR (occurrence: None)
  Receive Date: 20250627
  Receipt Date: 20250627
  Transmission Date: 20250716
  Serious: Yes (Hospitalization)
  Sender: ORION
  Company Number: None

PATIENT
  Age: 15 Year
  Sex: Male
  Weight: 82 kg

DRUGS (6)
  1. METHOTREXATE [Suspect]
     Active Substance: METHOTREXATE
     Indication: Colitis ulcerative
     Dates: start: 20240626
  2. INFLIXIMAB [Suspect]
     Active Substance: INFLIXIMAB
     Indication: Colitis ulcerative
     Dates: start: 20240626
  3. FOLIC ACID [Suspect]
     Active Substance: FOLIC ACID
     Indication: Colitis ulcerative
     Dates: start: 20240626
  4. ASCORBIC ACID\FERROUS SULFATE [Suspect]
     Active Substance: ASCORBIC ACID\FERROUS SULFATE
     Indication: Colitis ulcerative
     Dosage: STRENGTH: 50 MG
     Dates: start: 20240626
  5. ADALIMUMAB [Suspect]
     Active Substance: ADALIMUMAB
     Indication: Colitis ulcerative
     Dates: start: 202402, end: 20240626
  6. HYDROXYZINE [Concomitant]
     Active Substance: HYDROXYZINE HYDROCHLORIDE
     Indication: Anxiety
     Dates: end: 20240809

REACTIONS (5)
  - Suicide attempt [Recovered/Resolved]
  - Anxiety [Unknown]
  - Thymus disorder [Unknown]
  - Psychotic disorder [Unknown]
  - Product use in unapproved indication [Unknown]

NARRATIVE: CASE EVENT DATE: 20240626
